FAERS Safety Report 25918999 (Version 1)
Quarter: 2025Q4

REPORT INFORMATION
  Report Type: Spontaneous
  Country: US (occurrence: None)
  Receive Date: 20251011
  Receipt Date: 20251011
  Transmission Date: 20260117
  Serious: Yes (Hospitalization)
  Sender: FDA-CTU
  Company Number: None

PATIENT
  Age: 25 Year
  Sex: Male

DRUGS (2)
  1. GATTEX [Suspect]
     Active Substance: TEDUGLUTIDE\WATER
     Indication: Short-bowel syndrome
     Dosage: 5MG QD INJECTABLE
     Route: 058
     Dates: start: 20231213
  2. RIFAXIMIN [Suspect]
     Active Substance: RIFAXIMIN

REACTIONS (2)
  - Ileus [None]
  - Gastrointestinal microorganism overgrowth [None]

NARRATIVE: CASE EVENT DATE: 20251001
